FAERS Safety Report 19389364 (Version 2)
Quarter: 2021Q3

REPORT INFORMATION
  Report Type: Spontaneous
  Country: US (occurrence: US)
  Receive Date: 20210608
  Receipt Date: 20210705
  Transmission Date: 20211014
  Serious: Yes (Death)
  Sender: FDA-Public Use
  Company Number: US-BAUSCH-BL-2021-020270

PATIENT
  Age: 38 Year
  Sex: Male

DRUGS (2)
  1. BUPROPION HYDROCHLORIDE XL [Suspect]
     Active Substance: BUPROPION HYDROCHLORIDE
     Route: 065
     Dates: start: 202105
  2. BUPROPION HYDROCHLORIDE XL [Suspect]
     Active Substance: BUPROPION HYDROCHLORIDE
     Indication: MENTAL DISORDER
     Route: 065

REACTIONS (2)
  - Adverse reaction [Unknown]
  - Completed suicide [Fatal]

NARRATIVE: CASE EVENT DATE: 20210521
